FAERS Safety Report 9092425 (Version 1)
Quarter: 2013Q1

REPORT INFORMATION
  Report Type: Report from Study
  Country: US (occurrence: US)
  Receive Date: 20130131
  Receipt Date: 20130131
  Transmission Date: 20140127
  Serious: No
  Sender: FDA-Public Use
  Company Number: US-ABBOTT-12P-163-1022577-00

PATIENT
  Sex: Female
  Weight: 102.15 kg

DRUGS (6)
  1. HUMIRA [Suspect]
     Indication: BEHCET^S SYNDROME
     Dates: start: 201206, end: 201209
  2. HUMIRA [Suspect]
     Dates: start: 201210
  3. TIMOLOL MALEATE [Concomitant]
     Indication: GLAUCOMA
  4. PREDNISONE [Concomitant]
     Indication: BEHCET^S SYNDROME
  5. AZATHIOPRINE [Concomitant]
     Indication: BEHCET^S SYNDROME
  6. TYLENOL ER [Concomitant]
     Indication: PAIN

REACTIONS (1)
  - Drug ineffective [Recovered/Resolved]
